FAERS Safety Report 14845111 (Version 2)
Quarter: 2018Q2

REPORT INFORMATION
  Report Type: Report from Study
  Country: US (occurrence: US)
  Receive Date: 20180504
  Receipt Date: 20180511
  Transmission Date: 20180711
  Serious: Yes (Other)
  Sender: FDA-Public Use
  Company Number: US-BRISTOL-MYERS SQUIBB COMPANY-BMS-2018-039921

PATIENT
  Age: 62 Year
  Sex: Male
  Weight: 84.5 kg

DRUGS (2)
  1. NIVOLUMAB [Suspect]
     Active Substance: NIVOLUMAB
     Indication: AESTHESIONEUROBLASTOMA
     Dosage: 240 MG, Q2WK
     Route: 042
     Dates: start: 20171212
  2. IPILIMUMAB [Suspect]
     Active Substance: IPILIMUMAB
     Indication: AESTHESIONEUROBLASTOMA
     Dosage: 1 MG/KG, QCYCLE
     Route: 042
     Dates: start: 20171212

REACTIONS (1)
  - Lymphocyte count decreased [Recovered/Resolved]

NARRATIVE: CASE EVENT DATE: 20180109
